FAERS Safety Report 6019988-0 (Version None)
Quarter: 2008Q4

REPORT INFORMATION
  Report Type: 
  Country: None (occurrence: None)
  Receive Date: 20081223
  Receipt Date: 20081215
  Transmission Date: 20090506
  Serious: Yes (Hospitalization)
  Sender: FDA-Public Use
  Company Number: 233006K08USA

PATIENT
  Age: 58 Year
  Sex: Male

DRUGS (3)
  1. REBIF [Suspect]
     Indication: MULTIPLE SCLEROSIS
     Dosage: 44 MCG, 3 IN 1 WEEKS, SUBCUTANEOUS
     Route: 058
     Dates: start: 20080417
  2. NEURONTIN [Concomitant]
  3. BACLOFEN [Concomitant]

REACTIONS (3)
  - FALL [None]
  - MUSCLE SPASMS [None]
  - PARALYSIS [None]
